FAERS Safety Report 25814164 (Version 1)
Quarter: 2025Q3

REPORT INFORMATION
  Report Type: Spontaneous
  Country: US (occurrence: US)
  Receive Date: 20250917
  Receipt Date: 20250917
  Transmission Date: 20251021
  Serious: No
  Sender: MALLINCKRODT
  Company Number: US-MALLINCKRODT-MNK202505537

PATIENT
  Sex: Male

DRUGS (14)
  1. CORTICOTROPIN [Suspect]
     Active Substance: CORTICOTROPIN
     Indication: Pulmonary sarcoidosis
     Route: 058
  2. MONTELUKAST [Concomitant]
     Active Substance: MONTELUKAST
  3. VITAMIN B12 [Concomitant]
     Active Substance: CYANOCOBALAMIN
  4. AZELASTINE HYDROCHLORIDE [Concomitant]
     Active Substance: AZELASTINE HYDROCHLORIDE
  5. BUSPIRONE HCL [Concomitant]
     Active Substance: BUSPIRONE HYDROCHLORIDE
  6. CELECOXIB [Concomitant]
     Active Substance: CELECOXIB
  7. LAMOTRIGINE [Concomitant]
     Active Substance: LAMOTRIGINE
  8. OXYCODONE HYDROCHLORIDE [Concomitant]
     Active Substance: OXYCODONE HYDROCHLORIDE
  9. ROSUVASTATIN [Concomitant]
     Active Substance: ROSUVASTATIN
  10. TRELEGY ELLIPTA [Concomitant]
     Active Substance: FLUTICASONE FUROATE\UMECLIDINIUM BROMIDE\VILANTEROL TRIFENATATE
  11. ALBUTEROL SULFATE [Concomitant]
     Active Substance: ALBUTEROL SULFATE
  12. CALCIUM\VITAMIN D [Concomitant]
     Active Substance: CALCIUM\VITAMIN D
  13. OMEPRAZOLE [Concomitant]
     Active Substance: OMEPRAZOLE
  14. VITAMIN D3 [Concomitant]
     Active Substance: CHOLECALCIFEROL

REACTIONS (2)
  - Back pain [Unknown]
  - Arthralgia [Unknown]
